FAERS Safety Report 23004879 (Version 3)
Quarter: 2023Q4

REPORT INFORMATION
  Report Type: Report from Study
  Country: TR (occurrence: TR)
  Receive Date: 20230929
  Receipt Date: 20231012
  Transmission Date: 20240109
  Serious: Yes (Life-Threatening, Hospitalization)
  Sender: FDA-Public Use
  Company Number: TR-AMGEN-TURCT2023170326

PATIENT
  Age: 72 Year
  Sex: Female
  Weight: 75.6 kg

DRUGS (18)
  1. BLINATUMOMAB [Suspect]
     Active Substance: BLINATUMOMAB
     Indication: Acute lymphocytic leukaemia
     Dosage: 9 MICROGRAM
     Route: 042
     Dates: start: 20230922, end: 20230922
  2. FILGRASTIM [Concomitant]
     Active Substance: FILGRASTIM
     Dosage: 378 MICROGRAM
     Route: 058
     Dates: start: 20230920, end: 20230922
  3. HYDROCHLOROTHIAZIDE\IRBESARTAN [Concomitant]
     Active Substance: HYDROCHLOROTHIAZIDE\IRBESARTAN
     Dosage: 300 MILLIGRAM
     Route: 048
     Dates: start: 19960101
  4. CYCLOPHOSPHAMIDE [Concomitant]
     Active Substance: CYCLOPHOSPHAMIDE
     Dosage: 259.5 MILLIGRAM
     Route: 042
     Dates: start: 20230915, end: 20230917
  5. DEXAMETHASONE [Concomitant]
     Active Substance: DEXAMETHASONE
     Indication: Neurological examination abnormal
     Dosage: 17.3-20 MILLIGRAM
     Route: 042
     Dates: start: 20230915, end: 20230923
  6. SODIUM CHLORIDE [Concomitant]
     Active Substance: SODIUM CHLORIDE
     Dosage: UNK
     Dates: start: 20230915
  7. RITUXIMAB [Concomitant]
     Active Substance: RITUXIMAB
     Dosage: UNK
     Route: 042
     Dates: start: 20230915, end: 20230921
  8. VINCRISTINE [Concomitant]
     Active Substance: VINCRISTINE
     Dosage: 1 MILLIGRAM
     Route: 042
     Dates: start: 20230915, end: 20230922
  9. ALLOPURINOL [Concomitant]
     Active Substance: ALLOPURINOL
     Dosage: 15 MILLIGRAM
     Route: 048
     Dates: start: 20230915
  10. LACTULOSE [Concomitant]
     Active Substance: LACTULOSE
     Dosage: 5 MILLILITER
     Route: 048
     Dates: start: 20230915, end: 20230915
  11. NYSTATIN [Concomitant]
     Active Substance: NYSTATIN
     Dosage: 10 MILLILITER
     Route: 048
     Dates: start: 20230915, end: 20230915
  12. SODIUM BICARBONATE [Concomitant]
     Active Substance: SODIUM BICARBONATE
     Dosage: 10 MILLILITER
     Route: 042
     Dates: start: 20230915, end: 20230915
  13. MUCOPOLYSACCHARIDE POLYSULFATE [Concomitant]
     Dosage: 5 GRAM
     Route: 061
     Dates: start: 20230919
  14. CALCIUM CARBONATE [Concomitant]
     Active Substance: CALCIUM CARBONATE
     Dosage: 500 MILLIGRAM
     Route: 048
     Dates: start: 20230921, end: 20230922
  15. CALCIUM CARBONATE;SODIUM ALGINATE;SODIUM BICARBONATE [Concomitant]
     Dosage: 2 MILLILITER
     Route: 048
     Dates: start: 20230921, end: 20230921
  16. GRANISETRON [Concomitant]
     Active Substance: GRANISETRON
     Dosage: 3 MILLIGRAM
     Route: 042
     Dates: start: 20230915, end: 20230917
  17. PANTOPRAZOLE [Concomitant]
     Active Substance: PANTOPRAZOLE
     Dosage: 40 MILLIGRAM
     Route: 042
     Dates: start: 20230915
  18. PHENIRAMINE MALEATE [Concomitant]
     Active Substance: PHENIRAMINE MALEATE
     Dosage: 46 MILLIGRAM
     Route: 042
     Dates: start: 20230915, end: 20230917

REACTIONS (1)
  - Neurological examination abnormal [Recovered/Resolved]

NARRATIVE: CASE EVENT DATE: 20230923
